FAERS Safety Report 7380461-9 (Version None)
Quarter: 2011Q1

REPORT INFORMATION
  Report Type: 
  Country: None (occurrence: None)
  Receive Date: 20110329
  Receipt Date: 20110318
  Transmission Date: 20110831
  Serious: Yes (Congenital Anomaly)
  Sender: FDA-Public Use
  Company Number: US-JNJFOC-20060606400

PATIENT
  Sex: Female
  Weight: 2.33 kg

DRUGS (2)
  1. COPAXONE [Concomitant]
     Indication: DRUG EXPOSURE DURING PREGNANCY
     Dosage: THROUGHOUT PREGNANCY
     Route: 015
  2. TOPAMAX [Suspect]
     Indication: DRUG EXPOSURE DURING PREGNANCY
     Dosage: THROUGHOUT PREGNANCY
     Route: 015

REACTIONS (1)
  - PATENT DUCTUS ARTERIOSUS [None]
